FAERS Safety Report 15315388 (Version 1)
Quarter: 2018Q3

REPORT INFORMATION
  Report Type: Spontaneous
  Country: US (occurrence: US)
  Receive Date: 20180815
  Receipt Date: 20180815
  Transmission Date: 20181010
  Serious: Yes (Hospitalization)
  Sender: FDA-Public Use
  Company Number: None

PATIENT
  Age: 56 Year
  Sex: Female

DRUGS (1)
  1. COSENTYX [Suspect]
     Active Substance: SECUKINUMAB
     Route: 030

REACTIONS (4)
  - Cellulitis [None]
  - Chills [None]
  - Pollakiuria [None]
  - Delirium [None]

NARRATIVE: CASE EVENT DATE: 20180727
